FAERS Safety Report 9380370 (Version 1)
Quarter: 2013Q3

REPORT INFORMATION
  Report Type: Spontaneous
  Country: FR (occurrence: FR)
  Receive Date: 20130702
  Receipt Date: 20130702
  Transmission Date: 20140515
  Serious: Yes (Disabling)
  Sender: FDA-Public Use
  Company Number: FR-ASTRAZENECA-2013SE48965

PATIENT
  Age: 638 Month
  Sex: Female

DRUGS (5)
  1. XEROQUEL [Suspect]
     Route: 048
     Dates: start: 201203, end: 20130416
  2. TERCIAN [Suspect]
     Route: 048
  3. VALDOXAN [Concomitant]
     Route: 048
  4. EPITOMAX [Concomitant]
     Route: 048
  5. BROMAZEPAM [Concomitant]
     Route: 048

REACTIONS (1)
  - Tooth loss [Recovered/Resolved with Sequelae]
